FAERS Safety Report 5675093-4 (Version None)
Quarter: 2008Q1

REPORT INFORMATION
  Report Type: 
  Country: None (occurrence: None)
  Receive Date: 20080320
  Receipt Date: 20080312
  Transmission Date: 20080703
  Serious: Yes (Other)
  Sender: FDA-Public Use
  Company Number: US-JNJFOC-20080302802

PATIENT
  Age: 70 Year
  Sex: Male

DRUGS (7)
  1. CALCIUM CARBONATE [Suspect]
     Indication: DYSPEPSIA
     Dosage: FOR PAST ONE YEAR
  2. ALUMINUM HYDROXIDE/MAGNESIUM HYDROXIDE [Suspect]
     Indication: DYSPEPSIA
     Dosage: UNKNOWN DOSE
  3. METOPROLOL TARTRATE [Concomitant]
  4. AMLODIPINE [Concomitant]
  5. SIMVASTATIN [Concomitant]
  6. ROSIGLITAZONE [Concomitant]
  7. NEPHROVITE [Concomitant]

REACTIONS (1)
  - MILK-ALKALI SYNDROME [None]
